FAERS Safety Report 5770086-0 (Version None)
Quarter: 2008Q2

REPORT INFORMATION
  Report Type: 
  Country: None (occurrence: None)
  Receive Date: 20080613
  Receipt Date: 20080418
  Transmission Date: 20081010
  Serious: No
  Sender: FDA-Public Use
  Company Number: US-ABBOTT-08P-163-0448082-00

PATIENT
  Sex: Female
  Weight: 95.794 kg

DRUGS (8)
  1. HUMIRA [Suspect]
     Indication: RHEUMATOID ARTHRITIS
     Route: 058
     Dates: start: 20070201
  2. METHOTREXATE [Concomitant]
     Indication: RHEUMATOID ARTHRITIS
     Route: 048
  3. FOLIC ACID [Concomitant]
     Indication: VITAMIN SUPPLEMENTATION
     Route: 048
  4. LUNESTA [Concomitant]
     Indication: INSOMNIA
     Dosage: AT BEDTIME
     Route: 048
  5. VICODIN [Concomitant]
     Indication: PAIN
     Route: 048
  6. METAXALONE [Concomitant]
     Indication: MUSCLE RELAXANT THERAPY
     Route: 048
  7. SOLIFENACIN [Concomitant]
     Indication: URINARY INCONTINENCE
     Route: 048
  8. RABEPRAZOLE SODIUM [Concomitant]
     Indication: ANTACID THERAPY
     Route: 048

REACTIONS (3)
  - DRUG DOSE OMISSION [None]
  - PAIN [None]
  - PAIN IN EXTREMITY [None]
